FAERS Safety Report 23757734 (Version 1)
Quarter: 2024Q2

REPORT INFORMATION
  Report Type: Spontaneous
  Country: US (occurrence: US)
  Receive Date: 20240418
  Receipt Date: 20240418
  Transmission Date: 20240716
  Serious: Yes (Hospitalization)
  Sender: FDA-Public Use
  Company Number: US-BRISTOL-MYERS SQUIBB COMPANY-2024-059432

PATIENT
  Age: 92 Year
  Sex: Female

DRUGS (1)
  1. REVLIMID [Suspect]
     Active Substance: LENALIDOMIDE
     Indication: Diffuse large B-cell lymphoma
     Dosage: STRENGTH: 15 MG CAPSULE. FREQUENCY: ONE CAPSULE DAILY BY MOUTH FOR 21 DAYS OF A 28 DAY CYCLE.
     Route: 048

REACTIONS (2)
  - Gallbladder disorder [Unknown]
  - Off label use [Unknown]
